FAERS Safety Report 23630002 (Version 1)
Quarter: 2024Q1

REPORT INFORMATION
  Report Type: Spontaneous
  Country: US (occurrence: US)
  Receive Date: 20240314
  Receipt Date: 20240314
  Transmission Date: 20240409
  Serious: Yes (Other)
  Sender: FDA-Public Use
  Company Number: US-DENTSPLY-2024SCDP000069

PATIENT
  Age: 63 Year
  Sex: Male

DRUGS (2)
  1. LIDOCAINE [Suspect]
     Active Substance: LIDOCAINE
     Indication: Pain management
     Dosage: 2 MG/MINUTE FOR 43 HOURS LIDOCAINE INFUSION
  2. KETAMINE [Suspect]
     Active Substance: KETAMINE
     Indication: Pain management
     Dosage: 4 MCG/KG/MINUTE FOR 39.5 HOURS KETAMINE INFUSION

REACTIONS (4)
  - Facial paralysis [Unknown]
  - Mental status changes [Recovering/Resolving]
  - Drug level increased [Unknown]
  - Tremor [Unknown]
